FAERS Safety Report 4533859-8 (Version None)
Quarter: 2004Q4

REPORT INFORMATION
  Report Type: 
  Country: None (occurrence: None)
  Receive Date: 20041214
  Receipt Date: 20041008
  Transmission Date: 20050328
  Serious: No
  Sender: FDA-Public Use
  Company Number: USA041080553

PATIENT
  Age: 69 Year
  Sex: Male

DRUGS (3)
  1. CIALIS [Suspect]
     Dosage: 20 MG
     Dates: start: 20041008
  2. ZIAC [Concomitant]
  3. ZETIA [Concomitant]

REACTIONS (1)
  - DRUG INEFFECTIVE [None]
